FAERS Safety Report 19395182 (Version 1)
Quarter: 2021Q2

REPORT INFORMATION
  Report Type: Other
  Country: DE (occurrence: DE)
  Receive Date: 20210609
  Receipt Date: 20210609
  Transmission Date: 20210717
  Serious: Yes (Hospitalization, Other)
  Sender: FDA-Public Use
  Company Number: DE-MACLEODS PHARMA UK LTD-MAC2021031378

PATIENT

DRUGS (15)
  1. PANTOPRAZOLE [Suspect]
     Active Substance: PANTOPRAZOLE
     Indication: GASTRITIS PROPHYLAXIS
     Dosage: UNK
     Route: 048
     Dates: start: 2012
  2. NORSPAN [Suspect]
     Active Substance: BUPRENORPHINE
     Indication: RHEUMATIC DISORDER
     Dosage: UNK
     Route: 062
     Dates: start: 2019
  3. SYMBICORT [Suspect]
     Active Substance: BUDESONIDE\FORMOTEROL FUMARATE DIHYDRATE
     Indication: ASTHMA
     Dosage: UNK
     Route: 055
     Dates: start: 2000
  4. PREDNISOLONE. [Suspect]
     Active Substance: PREDNISOLONE
     Indication: RHEUMATIC DISORDER
     Dosage: UNK
     Route: 048
     Dates: start: 2006
  5. OPIUM. [Suspect]
     Active Substance: OPIUM
     Indication: DIARRHOEA
     Dosage: UNK
     Route: 048
     Dates: start: 2000
  6. EVEROLIMUS. [Suspect]
     Active Substance: EVEROLIMUS
     Indication: HEART TRANSPLANT
     Dosage: UNK
     Route: 048
     Dates: start: 2006
  7. ERGOCALCIFEROL. [Suspect]
     Active Substance: ERGOCALCIFEROL
     Indication: OSTEOPOROSIS
     Dosage: UNK
     Route: 048
     Dates: start: 2012
  8. BEROTEC [Suspect]
     Active Substance: FENOTEROL HYDROBROMIDE
     Indication: PRODUCT USED FOR UNKNOWN INDICATION
     Dosage: UNK
     Route: 055
     Dates: start: 2000
  9. TORSEMIDE. [Suspect]
     Active Substance: TORSEMIDE
     Indication: CARDIAC FAILURE
     Dosage: UNK
     Route: 048
     Dates: start: 2012
  10. PRAVASTATIN. [Suspect]
     Active Substance: PRAVASTATIN
     Indication: HYPERCHOLESTEROLAEMIA
     Dosage: UNK
     Route: 048
     Dates: start: 2012
  11. OPIUM. [Suspect]
     Active Substance: OPIUM
     Dosage: UNK
     Route: 048
     Dates: start: 2019
  12. TAFAMIDIS [Concomitant]
     Active Substance: TAFAMIDIS MEGLUMINE
     Indication: AMYLOIDOSIS
     Dosage: 20 MILLIGRAM, QD
     Route: 065
     Dates: start: 201708
  13. IBANDRONIC ACID. [Suspect]
     Active Substance: IBANDRONIC ACID
     Indication: OSTEOPOROSIS
     Dosage: UNK
     Route: 048
     Dates: start: 2012
  14. CICLOSPORIN [Suspect]
     Active Substance: CYCLOSPORINE
     Indication: HEART TRANSPLANT
     Dosage: UNK
     Route: 048
     Dates: start: 2006
  15. CALCIUM [Suspect]
     Active Substance: CALCIUM
     Indication: OSTEOPOROSIS
     Dosage: UNK
     Route: 048
     Dates: start: 2012

REACTIONS (16)
  - Urinary tract infection [Recovered/Resolved]
  - Renal cyst [Unknown]
  - Hepatic cirrhosis [Unknown]
  - Asthma [Unknown]
  - Dizziness [Unknown]
  - Dyspnoea [Unknown]
  - Pleural effusion [Unknown]
  - Congenital coronary artery malformation [Unknown]
  - Polyneuropathy [Unknown]
  - Chronic kidney disease [Unknown]
  - Arteriosclerosis [Unknown]
  - Cardiac failure [Recovered/Resolved]
  - Sinus arrhythmia [Unknown]
  - Arterial thrombosis [Unknown]
  - Pancreatic steatosis [Unknown]
  - Pyrexia [Recovered/Resolved]

NARRATIVE: CASE EVENT DATE: 2010
